FAERS Safety Report 23665315 (Version 1)
Quarter: 2024Q1

REPORT INFORMATION
  Report Type: Report from Study
  Country: CO (occurrence: CO)
  Receive Date: 20240322
  Receipt Date: 20240322
  Transmission Date: 20240409
  Serious: Yes (Other)
  Sender: FDA-Public Use
  Company Number: CO-ABBVIE-5689247

PATIENT
  Sex: Female
  Weight: 63 kg

DRUGS (1)
  1. SKYRIZI [Suspect]
     Active Substance: RISANKIZUMAB-RZAA
     Indication: Psoriasis
     Dosage: - FORM STRENGTH: 150 MG
     Route: 058
     Dates: start: 20220813, end: 20231214

REACTIONS (4)
  - Intraocular lens implant [Unknown]
  - Lacrimation decreased [Unknown]
  - Eye pain [Recovering/Resolving]
  - Eye irritation [Recovering/Resolving]

NARRATIVE: CASE EVENT DATE: 20220101
